FAERS Safety Report 7427960-9 (Version None)
Quarter: 2011Q2

REPORT INFORMATION
  Report Type: 
  Country: None (occurrence: None)
  Receive Date: 20110421
  Receipt Date: 20110321
  Transmission Date: 20111010
  Serious: Yes (Hospitalization, Other)
  Sender: FDA-Public Use
  Company Number: US-BAYER-2010-000457

PATIENT
  Age: 49 Year
  Sex: Female
  Weight: 50.34 kg

DRUGS (17)
  1. YASMIN [Suspect]
     Indication: PREMENSTRUAL SYNDROME
     Dosage: UNK
     Dates: start: 19960101, end: 20070101
  2. SINGULAIR [Concomitant]
  3. YAZ [Suspect]
     Indication: PREMENSTRUAL SYNDROME
     Dosage: UNK
     Dates: start: 19960101, end: 20070101
  4. LEXAPRO [Concomitant]
     Dosage: 20 MG, UNK
     Dates: start: 20070521
  5. FLUOXETINE [Concomitant]
     Dosage: 20 MG, UNK
  6. KETOROLAC TROMETHAMINE [Concomitant]
     Dosage: 10 MG, UNK
  7. IMITREX [Concomitant]
     Dosage: UNK
     Dates: start: 19960101, end: 20100101
  8. MAXALT [Concomitant]
     Dosage: UNK
     Dates: start: 19960101, end: 20100101
  9. ALBUTEROL [Concomitant]
  10. MILK THISTLE [Concomitant]
     Dosage: UNK
     Dates: start: 20100610
  11. CYMBALTA [Concomitant]
     Dosage: 20 MG, UNK
  12. VIVELLE-DOT [Concomitant]
  13. ASTHAPORT [Concomitant]
  14. TRAMADOL HCL [Concomitant]
     Dosage: 50 MG, UNK
     Dates: start: 20070105
  15. COLESTID [Concomitant]
     Dosage: 1 G, UNK
     Dates: start: 20070625
  16. AMITRIPTYLINE HCL [Concomitant]
     Dosage: 25 MG, UNK
  17. NAPRELAN [Concomitant]
     Dosage: 375 MG, UNK
     Dates: start: 20060612

REACTIONS (6)
  - DEPRESSION [None]
  - GALLBLADDER DISORDER [None]
  - CHOLECYSTITIS CHRONIC [None]
  - GALLBLADDER INJURY [None]
  - CHOLELITHIASIS [None]
  - LIGAMENT INJURY [None]
